FAERS Safety Report 19205033 (Version 1)
Quarter: 2021Q2

REPORT INFORMATION
  Report Type: Spontaneous
  Country: US (occurrence: US)
  Receive Date: 20210430
  Receipt Date: 20210430
  Transmission Date: 20210717
  Serious: Yes (Hospitalization)
  Sender: FDA-Public Use
  Company Number: None

PATIENT
  Age: 44 Year
  Sex: Male

DRUGS (1)
  1. EPCLUSA [Suspect]
     Active Substance: SOFOSBUVIR\VELPATASVIR
     Dosage: ?          OTHER DOSE:400/100MG;?
     Route: 048
     Dates: start: 202103

REACTIONS (5)
  - Hepatic enzyme increased [None]
  - Diarrhoea [None]
  - Abdominal pain upper [None]
  - Vomiting [None]
  - Gastrointestinal pain [None]

NARRATIVE: CASE EVENT DATE: 20210429
